FAERS Safety Report 18524666 (Version 2)
Quarter: 2020Q4

REPORT INFORMATION
  Report Type: Report from Study
  Country: US (occurrence: US)
  Receive Date: 20201120
  Receipt Date: 20201222
  Transmission Date: 20210114
  Serious: Yes (Hospitalization)
  Sender: FDA-Public Use
  Company Number: US-TAIHO ONCOLOGY  INC-EU-2020-04049

PATIENT
  Age: 61 Year
  Sex: Female

DRUGS (1)
  1. LONSURF [Suspect]
     Active Substance: TIPIRACIL HYDROCHLORIDE\TRIFLURIDINE
     Indication: RECTAL CANCER
     Dosage: CYCLE UNKNOWN
     Route: 048
     Dates: start: 20201103

REACTIONS (5)
  - Dyspepsia [Unknown]
  - Tongue discomfort [Unknown]
  - Hyponatraemia [Unknown]
  - Throat irritation [Unknown]
  - Abdominal pain [Unknown]

NARRATIVE: CASE EVENT DATE: 2020
